FAERS Safety Report 10063667 (Version 1)
Quarter: 2014Q2

REPORT INFORMATION
  Report Type: Report from Study
  Country: BR (occurrence: BR)
  Receive Date: 20140407
  Receipt Date: 20140407
  Transmission Date: 20141212
  Serious: Yes (Other)
  Sender: FDA-Public Use
  Company Number: PHHY2014BR040222

PATIENT
  Sex: Male

DRUGS (4)
  1. RITALIN LA [Suspect]
     Indication: MEMORY IMPAIRMENT
     Dosage: 1 DF (CONCENTRATION 40 MG), DAILY
     Route: 048
  2. RITALIN LA [Suspect]
     Indication: OFF LABEL USE
     Dosage: 1 DF (CONCENTRATION 20 MG) (1 TABLET ON SUNDAY AND 1 TAB ON MONDAY)
     Route: 048
  3. ALPRAZOLAM [Concomitant]
     Indication: SLEEP DISORDER
     Dosage: 1 DF, BID
  4. ALPRAZOLAM [Concomitant]
     Indication: ARRHYTHMIA

REACTIONS (3)
  - Dyspnoea [Recovering/Resolving]
  - Arrhythmia [Recovering/Resolving]
  - Cough [Recovering/Resolving]
